FAERS Safety Report 7937230-8 (Version None)
Quarter: 2011Q4

REPORT INFORMATION
  Report Type: 
  Country: None (occurrence: None)
  Receive Date: 20111123
  Receipt Date: 20111114
  Transmission Date: 20120403
  Serious: Yes (Hospitalization)
  Sender: FDA-Public Use
  Company Number: FR-GLAXOSMITHKLINE-B0762268A

PATIENT
  Sex: Female

DRUGS (13)
  1. ARTIFICIAL TEARS [Concomitant]
     Route: 047
  2. NEXIUM [Suspect]
     Indication: PROPHYLAXIS
     Dosage: 40MG SINGLE DOSE
     Route: 048
     Dates: end: 20111020
  3. MIANSERINE [Concomitant]
     Dosage: 1UNIT PER DAY
     Route: 065
  4. LASIX [Suspect]
     Indication: OEDEMA PERIPHERAL
     Dosage: 40MG PER DAY
     Route: 048
  5. ACETAMINOPHEN AND TRAMADOL HCL [Concomitant]
     Dosage: 2UNIT THREE TIMES PER DAY
     Route: 048
  6. BIMATOPROST AND TIMOLOL MALEATE [Concomitant]
     Route: 047
  7. ASPIRIN [Concomitant]
     Dosage: 75MG PER DAY
     Route: 065
  8. ALDACTONE [Suspect]
     Indication: OEDEMA PERIPHERAL
     Dosage: 25MG PER DAY
     Route: 048
     Dates: start: 20101101
  9. BISOPROLOL FUMARATE [Concomitant]
     Dosage: 1.25MG PER DAY
     Route: 065
  10. VITAMIN A [Concomitant]
     Route: 047
  11. LAMICTAL [Suspect]
     Indication: PARTIAL SEIZURES
     Route: 048
     Dates: start: 20111004, end: 20111012
  12. LOVENOX [Concomitant]
     Dosage: .4ML PER DAY
  13. AZOPT [Concomitant]
     Route: 047

REACTIONS (10)
  - MICROCYTIC ANAEMIA [None]
  - CYANOSIS [None]
  - EOSINOPHIL COUNT INCREASED [None]
  - PEMPHIGOID [None]
  - BLISTER [None]
  - ERYTHEMA MULTIFORME [None]
  - SKIN EROSION [None]
  - LYMPHADENOPATHY [None]
  - NIKOLSKY'S SIGN [None]
  - PRURITUS [None]
